FAERS Safety Report 9921771 (Version 3)
Quarter: 2014Q2

REPORT INFORMATION
  Report Type: Spontaneous
  Country: US (occurrence: US)
  Receive Date: 20140225
  Receipt Date: 20140401
  Transmission Date: 20141212
  Serious: Yes (Hospitalization)
  Sender: FDA-Public Use
  Company Number: US-PFIZER INC-2014049246

PATIENT
  Age: 72 Year
  Sex: Female

DRUGS (2)
  1. REVATIO [Suspect]
     Indication: PULMONARY HYPERTENSION
     Dosage: 20 MG, 3X/DAY
     Dates: start: 20090408
  2. REVATIO [Suspect]
     Dosage: 20 MG, DAILY
     Route: 048

REACTIONS (2)
  - Malaise [Unknown]
  - Dehydration [Unknown]
